FAERS Safety Report 23711455 (Version 6)
Quarter: 2024Q3

REPORT INFORMATION
  Report Type: Spontaneous
  Country: US (occurrence: US)
  Receive Date: 20240405
  Receipt Date: 20240807
  Transmission Date: 20241016
  Serious: No
  Sender: BRISTOL MYERS SQUIBB
  Company Number: US-BRISTOL-MYERS SQUIBB COMPANY-2024-053655

PATIENT
  Age: 68 Year
  Sex: Female

DRUGS (3)
  1. ORENCIA [Suspect]
     Active Substance: ABATACEPT
     Indication: Rheumatoid arthritis
     Route: 058
  2. ORENCIA [Suspect]
     Active Substance: ABATACEPT
     Route: 058
  3. ORENCIA [Suspect]
     Active Substance: ABATACEPT
     Dosage: EVERY OTHER WEEK
     Route: 058

REACTIONS (6)
  - Rheumatoid arthritis [Not Recovered/Not Resolved]
  - Urinary tract disorder [Unknown]
  - Rash [Unknown]
  - Dizziness [Recovering/Resolving]
  - Treatment noncompliance [Unknown]
  - Off label use [Unknown]

NARRATIVE: CASE EVENT DATE: 20240424
